FAERS Safety Report 5374876-8 (Version None)
Quarter: 2007Q2

REPORT INFORMATION
  Report Type: 
  Country: None (occurrence: None)
  Receive Date: 20070629
  Receipt Date: 20070619
  Transmission Date: 20071010
  Serious: Yes (Other)
  Sender: FDA-Public Use
  Company Number: B0476766A

PATIENT
  Age: 52 Year
  Sex: Female
  Weight: 44 kg

DRUGS (4)
  1. NICOTINE [Suspect]
     Route: 065
  2. ZYBAN [Suspect]
     Route: 048
     Dates: start: 20070606
  3. MOVICOL [Concomitant]
     Indication: CONSTIPATION
     Route: 065
  4. COLOFAC [Concomitant]
     Indication: CONSTIPATION
     Route: 065
     Dates: start: 20070618

REACTIONS (8)
  - BRADYPHRENIA [None]
  - DIZZINESS [None]
  - HALLUCINATION [None]
  - HEADACHE [None]
  - MALAISE [None]
  - NAUSEA [None]
  - NERVOUSNESS [None]
  - PALPITATIONS [None]
